FAERS Safety Report 14780385 (Version 1)
Quarter: 2018Q2

REPORT INFORMATION
  Report Type: Spontaneous
  Country: US (occurrence: US)
  Receive Date: 20180419
  Receipt Date: 20180419
  Transmission Date: 20180711
  Serious: No
  Sender: FDA-Public Use
  Company Number: US-AMNEAL PHARMACEUTICALS-2017AMN00902

PATIENT
  Sex: Male

DRUGS (2)
  1. MECLIZINE HYDROCHLORIDE. [Suspect]
     Active Substance: MECLIZINE HYDROCHLORIDE
     Dosage: UNK
     Route: 065
  2. NORTHERA [Concomitant]
     Active Substance: DROXIDOPA
     Dosage: 5 CAPSULES, 3X/DAY
     Route: 048
     Dates: start: 20170813

REACTIONS (1)
  - Pruritus [Unknown]
